FAERS Safety Report 10056807 (Version 2)
Quarter: 2014Q2

REPORT INFORMATION
  Report Type: Spontaneous
  Country: US (occurrence: US)
  Receive Date: 20140403
  Receipt Date: 20140403
  Transmission Date: 20141212
  Serious: Yes (Hospitalization, Other)
  Sender: FDA-Public Use
  Company Number: PHHY2014US016678

PATIENT
  Age: 58 Year
  Sex: Male

DRUGS (16)
  1. BACLOFEN INTRATHECAL [Suspect]
     Indication: MUSCLE SPASTICITY
     Dosage: 475.1 UG, PER DAY
     Route: 039
  2. BACLOFEN INTRATHECAL [Suspect]
     Dosage: 451 UG, DAILY
     Route: 037
  3. BACLOFEN INTRATHECAL [Suspect]
     Dosage: 96 UG/DAY
     Route: 037
  4. BACLOFEN INTRATHECAL [Suspect]
     Dosage: 50 UG/DAY
     Route: 037
  5. RESTORIL [Suspect]
     Dosage: UNK UKN, UNK
  6. DIAZEPAM TABLETS USP (PUREPAC) [Suspect]
     Dosage: UNK UKN, UNK
  7. MORPHINE [Suspect]
     Indication: MUSCLE SPASTICITY
     Dosage: 0.5226 MG, PER DAY
     Route: 037
  8. MORPHINE [Suspect]
     Dosage: 0.1 MG, PER DAY
     Route: 037
  9. MORPHINE [Suspect]
     Dosage: 55 UG/DAY
     Route: 037
  10. CLONIDINE [Suspect]
     Dosage: 106.9 UG, PER DAY
     Route: 037
  11. CLONIDINE [Suspect]
     Dosage: 21 UG/DAY
     Route: 037
  12. CLONIDINE [Suspect]
     Dosage: 11 UG/DAY
     Route: 037
  13. ZOCOR [Suspect]
     Dosage: UNK UKN, UNK
  14. CYMBALTA [Suspect]
     Dosage: UNK UKN, UNK
  15. LASIX [Suspect]
     Dosage: UNK UKN, UNK
  16. DOCUSATE [Suspect]
     Dosage: UNK UKN, UNK

REACTIONS (10)
  - Drug tolerance [Unknown]
  - Staring [Unknown]
  - Respiratory distress [Unknown]
  - Somnolence [Unknown]
  - Dyspnoea [Unknown]
  - Aggression [Unknown]
  - Hypertension [Unknown]
  - Nystagmus [Unknown]
  - Muscle spasticity [Unknown]
  - Overdose [Unknown]
